FAERS Safety Report 9482397 (Version 2)
Quarter: 2013Q3

REPORT INFORMATION
  Report Type: Spontaneous
  Country: FR (occurrence: FR)
  Receive Date: 20130828
  Receipt Date: 20130904
  Transmission Date: 20140515
  Serious: Yes (Death, Hospitalization)
  Sender: FDA-Public Use
  Company Number: FR-PFIZER INC-2013247147

PATIENT
  Age: 87 Year
  Sex: Male

DRUGS (16)
  1. AMIODARONE HCL [Suspect]
     Indication: ARRHYTHMIA
     Dosage: 200 MG AT 1 DOSE FORM AT MIDDAY
     Route: 048
     Dates: end: 20130320
  2. PERINDOPRIL [Suspect]
     Indication: HYPERTENSION
     Dosage: 2 MG AT 1 DOSE FORM IN THE MORNING
     Route: 048
     Dates: end: 20130318
  3. PANTOPRAZOLE [Suspect]
     Indication: PROPHYLAXIS
     Dosage: 20 MG AT 1 DOSE FORM AT MIDDAY
     Route: 048
     Dates: end: 20130320
  4. ALFUZOSIN HYDROCHLORIDE [Suspect]
     Dosage: STRENGTH: 10 MG AT 1 DOSE FORM DAILY
     Route: 048
     Dates: end: 20130312
  5. PARACETAMOL [Suspect]
     Indication: PAIN
     Dosage: STRENGTH: 500 MG AT 2 DOSE FORM THRICE DAILY
     Route: 048
     Dates: end: 201303
  6. PARACETAMOL [Suspect]
     Dosage: 1 G, 1X/DAY
     Route: 048
     Dates: start: 20130314, end: 20130314
  7. PARACETAMOL [Suspect]
     Dosage: 500 MG, 1X/DAY
     Route: 048
     Dates: start: 20130315, end: 20130315
  8. PARACETAMOL [Suspect]
     Dosage: UNK
     Route: 048
     Dates: start: 20130316, end: 20130317
  9. LASILIX FAIBLE [Suspect]
     Indication: HYPERTENSION
     Dosage: STRENGTH: 20 MG TABLET AT 1 DOSE FORM IN THE MORNING
     Route: 048
     Dates: end: 20130318
  10. KARDEGIC [Suspect]
     Indication: PLATELET AGGREGATION INHIBITION
     Dosage: STRENGTH: 75 MG AT 1 DOSE FORM AT MIDDAY
     Route: 048
     Dates: end: 20130320
  11. ZOLPIDEM [Suspect]
     Indication: INSOMNIA
     Dosage: STRENGTH: 10 MG AT A DOSE OF 1/2 DOSE FORM IN THE EVENING
     Route: 048
     Dates: end: 20130318
  12. SPECIAFOLDINE [Suspect]
     Indication: FOLATE DEFICIENCY
     Dosage: STRENGTH: 5 MG TABLET AT 1 DOSE FORM AT MIDDAY
     Route: 048
     Dates: end: 20130320
  13. ALLOPURINOL [Suspect]
     Dosage: STRENGTH: 100 MG AT 1 DOSE FORM, DAILY
     Route: 048
     Dates: end: 20130312
  14. PERFALGAN [Suspect]
     Indication: PAIN
     Dosage: 1 G, 3X/DAY
     Route: 042
     Dates: start: 20130317, end: 20130321
  15. LEVOTHYROX [Suspect]
     Indication: HYPOTHYROIDISM
     Dosage: STRENGTH: 50 MCG TABLET AT 1 DOSE FORM IN THE MORNING
     Route: 048
     Dates: end: 20130320
  16. AUGMENTIN [Suspect]
     Dosage: UNK
     Route: 065
     Dates: start: 20130313, end: 20130317

REACTIONS (4)
  - Hepatocellular injury [Fatal]
  - Analgesic drug level increased [Fatal]
  - Fall [Unknown]
  - Cardiac failure [Unknown]
